FAERS Safety Report 9356214 (Version 1)
Quarter: 2013Q2

REPORT INFORMATION
  Report Type: Spontaneous
  Country: US (occurrence: US)
  Receive Date: 20130619
  Receipt Date: 20130619
  Transmission Date: 20140414
  Serious: Yes (Hospitalization)
  Sender: FDA-Public Use
  Company Number: US-PFIZER INC-2013141023

PATIENT
  Age: 12 Year
  Sex: Male

DRUGS (1)
  1. RIFAMPIN [Suspect]
     Dosage: 200 MG, 3X/DAY (EVERY 8 HRS)
     Route: 042
     Dates: start: 20121222, end: 20121229

REACTIONS (4)
  - Pyrexia [Unknown]
  - Rash [Unknown]
  - Drug dispensing error [Unknown]
  - Product quality issue [Unknown]
